FAERS Safety Report 13982369 (Version 3)
Quarter: 2017Q4

REPORT INFORMATION
  Report Type: Spontaneous
  Country: US (occurrence: US)
  Receive Date: 20170918
  Receipt Date: 20171211
  Transmission Date: 20180321
  Serious: No
  Sender: FDA-Public Use
  Company Number: US-PFIZER INC-2016465881

PATIENT
  Sex: Female
  Weight: 62 kg

DRUGS (8)
  1. LETROZOLE. [Concomitant]
     Active Substance: LETROZOLE
     Indication: BREAST CANCER FEMALE
     Dosage: 2.5 MG, DAILY
     Route: 048
  2. GABAPENTIN. [Concomitant]
     Active Substance: GABAPENTIN
     Indication: HOT FLUSH
     Dosage: 300 MG, 1X/DAY(ONE PILL A DAY AT NIGHT TIME/ MAY INCREASE TO TWICE PER DAY AFTER 3 DAYS)
     Route: 048
  3. DOCUSATE SODIUM AND SENNA [Concomitant]
     Active Substance: DOCUSATE SODIUM\SENNOSIDES
     Dosage: 1 DF, 1X/DAY [50 MG DOCUSATE SODIUM] / [SENNOSIDE A+B 8.6 MG]
     Route: 048
  4. VENLAFAXINE [Concomitant]
     Active Substance: VENLAFAXINE HYDROCHLORIDE
     Dosage: 150 MG, DAILY
     Route: 048
  5. IBRANCE [Suspect]
     Active Substance: PALBOCICLIB
     Indication: BREAST CANCER STAGE IV
     Dosage: 100 MG, CYCLIC (ONCE A DAY 21 DAYS, THEN 7 DAYS OFF/TAKE WITH FOOD)
     Route: 048
     Dates: start: 2016
  6. OXYCODONE [Concomitant]
     Active Substance: OXYCODONE
     Indication: PAIN
     Dosage: 5 MG, AS NEEDED ( 1 TO 2 EVERY 4 TO 6 HOURS AS NEEDED)
  7. OMEPRAZOLE. [Concomitant]
     Active Substance: OMEPRAZOLE
     Indication: GASTROOESOPHAGEAL REFLUX DISEASE
     Dosage: 20 MG, 1X/DAY
  8. FENTANYL. [Concomitant]
     Active Substance: FENTANYL
     Indication: PAIN
     Dosage: 1 DF, AS NEEDED (25 MCG/HR / 48 - 72 HOUR INTERVAL)
     Route: 062

REACTIONS (6)
  - Laryngitis [Not Recovered/Not Resolved]
  - Dysphonia [Unknown]
  - Platelet count decreased [Unknown]
  - White blood cell count decreased [Unknown]
  - Drug hypersensitivity [Unknown]
  - Upper-airway cough syndrome [Unknown]
